FAERS Safety Report 20232148 (Version 1)
Quarter: 2021Q4

REPORT INFORMATION
  Report Type: Spontaneous
  Country: US (occurrence: US)
  Receive Date: 20211227
  Receipt Date: 20211227
  Transmission Date: 20220303
  Serious: Yes (Other)
  Sender: FDA-Public Use
  Company Number: US-NOVARTISPH-NVSC2021US291902

PATIENT
  Sex: Female
  Weight: 67.1 kg

DRUGS (7)
  1. ZOFRAN [Suspect]
     Active Substance: ONDANSETRON HYDROCHLORIDE
     Indication: Product used for unknown indication
     Dosage: UNK
     Route: 065
  2. TREPROSTINIL SODIUM [Suspect]
     Active Substance: TREPROSTINIL SODIUM
     Indication: Pulmonary arterial hypertension
     Dosage: UNK UNK, QID 18-72 ?G (INHALATION GAS) (3-12 BREATHS) (STRENGTH: 0.6 MG/ML)
     Route: 055
     Dates: start: 20211029
  3. TREPROSTINIL SODIUM [Suspect]
     Active Substance: TREPROSTINIL SODIUM
     Dosage: UNK UNK, QID (18-72 ?G)
     Route: 055
     Dates: start: 2021
  4. TREPROSTINIL SODIUM [Suspect]
     Active Substance: TREPROSTINIL SODIUM
     Dosage: UNK
     Route: 055
     Dates: start: 2021
  5. SILDENAFIL CITRATE [Concomitant]
     Active Substance: SILDENAFIL CITRATE
     Indication: Product used for unknown indication
     Dosage: UNK
     Route: 065
  6. ELIQUIS [Concomitant]
     Active Substance: APIXABAN
     Indication: Product used for unknown indication
     Dosage: UNK
     Route: 065
  7. DILTIAZEM [Concomitant]
     Active Substance: DILTIAZEM
     Indication: Product used for unknown indication
     Dosage: UNK
     Route: 065

REACTIONS (7)
  - Eye haemorrhage [Unknown]
  - Faecaloma [Unknown]
  - Constipation [Unknown]
  - Nausea [Unknown]
  - Cough [Unknown]
  - Haemorrhoids [Unknown]
  - Diarrhoea [Unknown]
